FAERS Safety Report 5854775-5 (Version None)
Quarter: 2008Q3

REPORT INFORMATION
  Report Type: 
  Country: None (occurrence: None)
  Receive Date: 20080822
  Receipt Date: 20080101
  Transmission Date: 20090109
  Serious: No
  Sender: FDA-Public Use
  Company Number: US-ABBOTT-08P-163-0432504-00

PATIENT
  Sex: Female

DRUGS (2)
  1. SYNTHROID [Suspect]
     Indication: DRUG USE FOR UNKNOWN INDICATION
     Route: 048
  2. SYNTHROID [Suspect]
     Route: 048

REACTIONS (3)
  - FEELING ABNORMAL [None]
  - HYPERTHYROIDISM [None]
  - HYPOTHYROIDISM [None]
